FAERS Safety Report 11125618 (Version 1)
Quarter: 2015Q2

REPORT INFORMATION
  Report Type: Spontaneous
  Country: US (occurrence: US)
  Receive Date: 20150520
  Receipt Date: 20150520
  Transmission Date: 20150821
  Serious: Yes (Other)
  Sender: FDA-Public Use
  Company Number: US-TEVA-563349ACC

PATIENT
  Age: 32 Year
  Sex: Female
  Weight: 88.98 kg

DRUGS (2)
  1. PARAGARD T 380A [Suspect]
     Active Substance: COPPER
     Indication: CONTRACEPTION
     Route: 015
     Dates: start: 20150416
  2. PRENATAL VITAMIN [Concomitant]
     Active Substance: VITAMINS
     Indication: BREAST FEEDING
     Dosage: UNKNOWN FORM STRENGTH
     Route: 065

REACTIONS (1)
  - Device dislocation [Unknown]

NARRATIVE: CASE EVENT DATE: 20150511
